FAERS Safety Report 4780401-2 (Version None)
Quarter: 2005Q3

REPORT INFORMATION
  Report Type: 
  Country: None (occurrence: None)
  Receive Date: 20050927
  Receipt Date: 20050926
  Transmission Date: 20060218
  Serious: Yes (Disabling, Other)
  Sender: FDA-Public Use
  Company Number: US-JNJFOC-20050500822

PATIENT
  Sex: Female
  Weight: 62.6 kg

DRUGS (7)
  1. LEVAQUIN [Suspect]
     Route: 048
  2. LEVAQUIN [Suspect]
     Route: 048
  3. LEVAQUIN [Suspect]
     Dosage: PHYSICIAN REPORTED PRESCRIBED COURSES OF 500MG DAILY X 10 DAYS IN JAN AND FEB-05.
     Route: 048
  4. LEVAQUIN [Suspect]
     Route: 048
  5. THALOMID [Suspect]
     Indication: MULTIPLE MYELOMA
     Route: 048
  6. DEXAMETHASONE [Concomitant]
  7. COUMADIN [Concomitant]
     Route: 048

REACTIONS (4)
  - FIBROMYALGIA [None]
  - MULTIPLE MYELOMA [None]
  - NEUROPATHY PERIPHERAL [None]
  - TENDONITIS [None]
